FAERS Safety Report 7489061-3 (Version None)
Quarter: 2011Q2

REPORT INFORMATION
  Report Type: 
  Country: None (occurrence: None)
  Receive Date: 20110518
  Receipt Date: 20110510
  Transmission Date: 20111010
  Serious: Yes (Other)
  Sender: FDA-Public Use
  Company Number: US-ELI_LILLY_AND_COMPANY-US201104002440

PATIENT
  Sex: Female

DRUGS (1)
  1. HUMALOG [Suspect]
     Indication: DIABETES MELLITUS
     Dosage: 20 U, OTHER
     Dates: start: 20090101

REACTIONS (5)
  - MOBILITY DECREASED [None]
  - ROAD TRAFFIC ACCIDENT [None]
  - FOOT FRACTURE [None]
  - LOWER LIMB FRACTURE [None]
  - DIABETES MELLITUS INADEQUATE CONTROL [None]
